FAERS Safety Report 7124765-3 (Version None)
Quarter: 2010Q4

REPORT INFORMATION
  Report Type: 
  Country: None (occurrence: None)
  Receive Date: 20101123
  Receipt Date: 20101123
  Transmission Date: 20110411
  Serious: Yes (Hospitalization)
  Sender: FDA-Public Use
  Company Number: None

PATIENT
  Age: 73 Year
  Sex: Male
  Weight: 89.8122 kg

DRUGS (12)
  1. SIMVASTATIN [Suspect]
     Indication: DYSLIPIDAEMIA
     Dosage: 40 MG DAILY PO
     Route: 048
     Dates: start: 20100715, end: 20100717
  2. SPIRONOLACTONE [Concomitant]
  3. POTASSIUM CHLORIDE [Concomitant]
  4. QUETIAPINE [Concomitant]
  5. MILK OF MAGNESIUM [Concomitant]
  6. LACTULOSE [Concomitant]
  7. INSULIN ASPART [Concomitant]
  8. FUROSEMIDE [Concomitant]
  9. ENALAPIL [Concomitant]
  10. DIVALPROEX EXTENDED-RELEASE [Concomitant]
  11. CLOTRIAMAZOLE/BETHAMETHASONE CREAM [Concomitant]
  12. BACITRACIN TOPICAL OINTMENT [Concomitant]

REACTIONS (5)
  - CYANOSIS [None]
  - DEEP VEIN THROMBOSIS [None]
  - OXYGEN SATURATION DECREASED [None]
  - RENAL FAILURE ACUTE [None]
  - RHABDOMYOLYSIS [None]
